FAERS Safety Report 5064002-7 (Version None)
Quarter: 2006Q3

REPORT INFORMATION
  Report Type: 
  Country: None (occurrence: None)
  Receive Date: 20060703
  Receipt Date: 20060309
  Transmission Date: 20061208
  Serious: Yes (Other)
  Sender: FDA-Public Use
  Company Number: 144880USA

PATIENT
  Age: 13 Year
  Sex: Male

DRUGS (1)
  1. AMOXICILLIN AND CLAUVULANATE POTASSIUM [Suspect]

REACTIONS (2)
  - CHEST PAIN [None]
  - HYPERSENSITIVITY [None]
